FAERS Safety Report 14651035 (Version 2)
Quarter: 2018Q1

REPORT INFORMATION
  Report Type: Spontaneous
  Country: US (occurrence: US)
  Receive Date: 20180316
  Receipt Date: 20180322
  Transmission Date: 20180509
  Serious: Yes (Other)
  Sender: FDA-Public Use
  Company Number: US-TEVA-2018-US-869719

PATIENT
  Sex: Female

DRUGS (2)
  1. VENLAFAXINE HYDROCHLORIDE. [Suspect]
     Active Substance: VENLAFAXINE HYDROCHLORIDE
     Dosage: APPROXIMATELY 2-2.5 YEARS
     Dates: start: 2016
  2. VENLAFAXINE HYDROCHLORIDE. [Suspect]
     Active Substance: VENLAFAXINE HYDROCHLORIDE
     Indication: DEPRESSION
     Dosage: APPROXIMATELY 1 YEAR

REACTIONS (7)
  - Diabetes mellitus inadequate control [Unknown]
  - Drug dose omission [Unknown]
  - Visual impairment [Unknown]
  - Hyperhidrosis [Unknown]
  - Nervousness [Unknown]
  - Diabetes mellitus [Unknown]
  - Tremor [Unknown]

NARRATIVE: CASE EVENT DATE: 2017
